FAERS Safety Report 9854776 (Version 1)
Quarter: 2014Q1

REPORT INFORMATION
  Report Type: Spontaneous
  Country: US (occurrence: US)
  Receive Date: 20140130
  Receipt Date: 20140130
  Transmission Date: 20141002
  Serious: No
  Sender: FDA-Public Use
  Company Number: US-PFIZER INC-2014027275

PATIENT
  Sex: Female

DRUGS (1)
  1. MEDROL [Suspect]
     Dosage: 4 MG, UNK
     Dates: start: 20140117

REACTIONS (1)
  - Abdominal pain upper [Unknown]
